FAERS Safety Report 9435441 (Version 3)
Quarter: 2014Q3

REPORT INFORMATION
  Report Type: Spontaneous
  Country: US (occurrence: US)
  Receive Date: 20130801
  Receipt Date: 20140820
  Transmission Date: 20150326
  Serious: Yes (Other)
  Sender: FDA-Public Use
  Company Number: US-BAYER-2013-093158

PATIENT
  Age: 36 Year
  Sex: Female
  Weight: 109 kg

DRUGS (2)
  1. PREVACID [Concomitant]
     Active Substance: LANSOPRAZOLE
  2. MIRENA [Suspect]
     Active Substance: LEVONORGESTREL
     Indication: CONTRACEPTION
     Dosage: 20 MCG/24HR, CONT
     Route: 015
     Dates: start: 200910

REACTIONS (10)
  - Genital haemorrhage [None]
  - Pregnancy with contraceptive device [None]
  - Fear [None]
  - Device dislocation [None]
  - Abdominal pain [None]
  - Depression [None]
  - Abortion spontaneous incomplete [None]
  - Anxiety [None]
  - Drug ineffective [None]
  - Uterine neoplasm [None]

NARRATIVE: CASE EVENT DATE: 201101
